FAERS Safety Report 23319297 (Version 2)
Quarter: 2023Q4

REPORT INFORMATION
  Report Type: Report from Study
  Country: US (occurrence: US)
  Receive Date: 20231220
  Receipt Date: 20231229
  Transmission Date: 20240110
  Serious: No
  Sender: FDA-Public Use
  Company Number: US-ALXN-A202304492

PATIENT
  Age: 49 Year
  Sex: Female

DRUGS (4)
  1. STRENSIQ [Suspect]
     Active Substance: ASFOTASE ALFA
     Indication: Hypophosphatasia
     Dosage: UNK UNK, TIW
     Route: 065
  2. STRENSIQ [Suspect]
     Active Substance: ASFOTASE ALFA
     Dosage: 80 MG, QW
     Route: 065
  3. VYVANSE [Concomitant]
     Active Substance: LISDEXAMFETAMINE DIMESYLATE
     Indication: Product used for unknown indication
     Dosage: UNK
     Route: 065
  4. VYVANSE [Concomitant]
     Active Substance: LISDEXAMFETAMINE DIMESYLATE
     Dosage: 30 MG, QD
     Route: 065

REACTIONS (38)
  - Sensory disturbance [Unknown]
  - Fatigue [Recovering/Resolving]
  - Neck pain [Not Recovered/Not Resolved]
  - Brain fog [Recovering/Resolving]
  - Abdominal distension [Unknown]
  - Weight increased [Not Recovered/Not Resolved]
  - Muscle spasms [Unknown]
  - Initial insomnia [Unknown]
  - Flatulence [Unknown]
  - Chest pain [Not Recovered/Not Resolved]
  - Dry skin [Unknown]
  - Dyspepsia [Unknown]
  - Dehydration [Unknown]
  - Arthralgia [Unknown]
  - Lung disorder [Not Recovered/Not Resolved]
  - Pulmonary pain [Not Recovered/Not Resolved]
  - Oral pain [Not Recovered/Not Resolved]
  - Feeling abnormal [Not Recovered/Not Resolved]
  - Underdose [Unknown]
  - Cough [Unknown]
  - Amenorrhoea [Unknown]
  - Tooth fracture [Unknown]
  - Skin reaction [Unknown]
  - Viral upper respiratory tract infection [Unknown]
  - Hypersensitivity [Unknown]
  - Urinary tract infection [Unknown]
  - Muscle strength abnormal [Unknown]
  - Mobility decreased [Unknown]
  - Muscle strength abnormal [Unknown]
  - Memory impairment [Unknown]
  - Injection site reaction [Unknown]
  - Injection site pain [Not Recovered/Not Resolved]
  - Injection site swelling [Unknown]
  - Insomnia [Unknown]
  - Ovarian cyst [Unknown]
  - Gastrooesophageal reflux disease [Unknown]
  - Off label use [Unknown]
  - Heavy menstrual bleeding [Unknown]

NARRATIVE: CASE EVENT DATE: 20230428
